FAERS Safety Report 5001075-1 (Version None)
Quarter: 2006Q2

REPORT INFORMATION
  Report Type: 
  Country: None (occurrence: None)
  Receive Date: 20060512
  Receipt Date: 20060308
  Transmission Date: 20061013
  Serious: Yes (Hospitalization)
  Sender: FDA-Public Use
  Company Number: CA-BRISTOL-MYERS SQUIBB COMPANY-13308069

PATIENT
  Age: 61 Year
  Sex: Female
  Weight: 47 kg

DRUGS (9)
  1. CYCLOPHOSPHAMIDE [Suspect]
     Indication: BREAST CANCER METASTATIC
     Route: 042
     Dates: start: 20060221, end: 20060221
  2. CAELYX [Suspect]
     Indication: BREAST CANCER METASTATIC
     Route: 042
     Dates: start: 20060221, end: 20060221
  3. DIDROCAL [Concomitant]
     Route: 048
  4. PARIET [Concomitant]
     Route: 048
  5. MELOXICAM [Concomitant]
     Route: 048
  6. HYCODAN [Concomitant]
     Route: 048
  7. TYLENOL W/ CODEINE NO. 3 [Concomitant]
     Route: 048
  8. DOCUSATE SODIUM [Concomitant]
     Route: 048
  9. HYDROCHLOROTHIAZIDE W/TRIAMTERENE [Concomitant]
     Route: 048

REACTIONS (12)
  - ABDOMINAL PAIN [None]
  - COLLAPSE OF LUNG [None]
  - COUGH [None]
  - DEHYDRATION [None]
  - DIARRHOEA [None]
  - HYPERTENSION [None]
  - LUNG CONSOLIDATION [None]
  - PLEURAL EFFUSION [None]
  - PULMONARY MASS [None]
  - PYREXIA [None]
  - SCOLIOSIS [None]
  - VOMITING [None]
